FAERS Safety Report 6543967-8 (Version None)
Quarter: 2010Q1

REPORT INFORMATION
  Report Type: 
  Country: None (occurrence: None)
  Receive Date: 20100120
  Receipt Date: 20100108
  Transmission Date: 20100710
  Serious: Yes (Hospitalization)
  Sender: FDA-Public Use
  Company Number: PHHY2010DE01175

PATIENT
  Sex: Male
  Weight: 90 kg

DRUGS (9)
  1. DIOVAN HCT [Suspect]
     Dosage: UNK
     Dates: start: 20091102
  2. AMLODIPINE BESYLATE [Suspect]
     Dosage: UNK
     Dates: start: 20091102
  3. LYRICA [Suspect]
     Dosage: UNK
     Dates: start: 20091102
  4. DILTIAZEM [Suspect]
     Dosage: UNK
     Dates: start: 20091102
  5. TAVOR (FLUCONAZOLE) [Suspect]
     Dosage: UNK
     Dates: start: 20091102
  6. FLUOXETINE [Suspect]
     Dosage: UNK
     Dates: start: 20091102
  7. PROMETHAZINE [Suspect]
     Dosage: UNK
     Dates: start: 20091102
  8. TIMONIL [Suspect]
     Dosage: UNK
     Dates: start: 20091102
  9. TRANXILIUM [Suspect]
     Dosage: UNK
     Dates: start: 20091102

REACTIONS (3)
  - GASTROINTESTINAL SOUNDS ABNORMAL [None]
  - SOMNOLENCE [None]
  - SUICIDE ATTEMPT [None]
